FAERS Safety Report 5288694-2 (Version None)
Quarter: 2007Q2

REPORT INFORMATION
  Report Type: 
  Country: None (occurrence: None)
  Receive Date: 20070405
  Receipt Date: 20070330
  Transmission Date: 20071010
  Serious: Yes (Other)
  Sender: FDA-Public Use
  Company Number: 2006UW25944

PATIENT
  Age: 43 Year
  Sex: Male
  Weight: 40.9 kg

DRUGS (9)
  1. SEROQUEL [Suspect]
     Indication: POST-TRAUMATIC STRESS DISORDER
     Route: 048
     Dates: start: 19990101
  2. SEROQUEL [Suspect]
     Route: 048
     Dates: start: 20031008
  3. CLOZARIL [Concomitant]
     Dates: start: 20020101, end: 20060101
  4. RISPERDAL [Concomitant]
     Dates: start: 20010101, end: 20060101
  5. ZYPREXA [Concomitant]
     Dates: start: 20030101
  6. DEPAKOTE [Concomitant]
     Dates: start: 20040101
  7. PAXIL [Concomitant]
     Dates: start: 20020101, end: 20060101
  8. ZOLOFT [Concomitant]
     Dates: start: 20020101, end: 20060101
  9. EFFEXOR [Concomitant]
     Dates: start: 20020101, end: 20060101

REACTIONS (6)
  - ANXIETY [None]
  - BIPOLAR DISORDER [None]
  - COLLAPSE OF LUNG [None]
  - DIABETES MELLITUS NON-INSULIN-DEPENDENT [None]
  - HYPERGLYCAEMIA [None]
  - OVERDOSE [None]
